FAERS Safety Report 9132330 (Version 1)
Quarter: 2013Q1

REPORT INFORMATION
  Report Type: Spontaneous
  Country: US (occurrence: US)
  Receive Date: 20130120
  Receipt Date: 20130120
  Transmission Date: 20140127
  Serious: No
  Sender: FDA-Public Use
  Company Number: US-ALLERGAN-1213465US

PATIENT
  Age: 51 Year
  Sex: Female

DRUGS (6)
  1. BOTOX? [Suspect]
     Indication: MIGRAINE
     Dosage: 200 UNITS, SINGLE
     Route: 030
     Dates: start: 20120505, end: 20120505
  2. BLOOD PRESSURE MEDICATION [Concomitant]
     Indication: MIGRAINE PROPHYLAXIS
     Dosage: UNK, QD
     Route: 048
  3. HRT [Concomitant]
     Indication: HORMONE REPLACEMENT THERAPY
     Dosage: UNK UNK, QD
     Route: 048
  4. ACID REFLUX MEDICINE [Concomitant]
     Indication: GASTROOESOPHAGEAL REFLUX DISEASE
     Dosage: UNK, QD
     Route: 048
  5. RELPAX [Concomitant]
     Indication: MIGRAINE
     Dosage: UNK UNK, PRN
     Route: 048
  6. ZOMIG [Concomitant]
     Indication: MIGRAINE
     Dosage: UNK UNK, PRN
     Route: 048

REACTIONS (2)
  - Incorrect dose administered [Unknown]
  - Drug ineffective [Unknown]
